FAERS Safety Report 10609970 (Version 3)
Quarter: 2014Q4

REPORT INFORMATION
  Report Type: Spontaneous
  Country: US (occurrence: US)
  Receive Date: 20141126
  Receipt Date: 20141230
  Transmission Date: 20150529
  Serious: Yes (Death, Hospitalization, Other)
  Sender: FDA-Public Use
  Company Number: US-PFIZER INC-2014323299

PATIENT
  Age: 86 Year
  Sex: Female
  Weight: 68 kg

DRUGS (25)
  1. PREDNISONE. [Concomitant]
     Active Substance: PREDNISONE
     Dosage: 5 MG, UNK (DAY)
  2. TYLENOL [Concomitant]
     Active Substance: ACETAMINOPHEN
     Indication: PAIN
     Dosage: UNK, AS NEEDED (Q.6 HOURS P.R.N.)
  3. CLONIDINE. [Concomitant]
     Active Substance: CLONIDINE
     Dosage: 1 DF, AS NEEDED (0.1 MG ORAL TABLET, O.L MG = 1 TABLETS, PEG TUBE, Q6H, PRN)
  4. AFRIN SINUS [Concomitant]
     Active Substance: OXYMETAZOLINE HYDROCHLORIDE
     Dosage: UNK, AS NEEDED (SPRAY B.I.D. P.R.N.)
  5. CLINDAMYCIN [Concomitant]
     Active Substance: CLINDAMYCIN\CLINDAMYCIN PHOSPHATE
     Dosage: 0.1 MG, AS NEEDED (1 TABLETS, PEG TUBE, Q6H, PRN)
     Route: 048
  6. FERROUS FUMARATE [Concomitant]
     Active Substance: FERROUS FUMARATE
     Dosage: 325 MG, DAILY (BETWEEN MEALS TO IMPROVE ABSORPTION, IF TOLERATED)
     Route: 048
  7. XELJANZ [Suspect]
     Active Substance: TOFACITINIB CITRATE
     Indication: RHEUMATOID ARTHRITIS
     Dosage: 5 MG, 2X/DAY
     Route: 048
     Dates: start: 20140101, end: 20140816
  8. AFRIN SINUS [Concomitant]
     Active Substance: OXYMETAZOLINE HYDROCHLORIDE
     Dosage: UNK UNK, AS NEEDED (0.05% NASAL SPRAY, 1 SPRAYS, EACH NOSTRIL, BID, PRN)
  9. CLINDAMYCIN [Concomitant]
     Active Substance: CLINDAMYCIN\CLINDAMYCIN PHOSPHATE
     Dosage: 300 MG, 4X/DAY
  10. METOPROLOL TARTRATE. [Concomitant]
     Active Substance: METOPROLOL TARTRATE
     Dosage: UNK UNK, DAILY
     Route: 048
  11. PREDNISONE. [Concomitant]
     Active Substance: PREDNISONE
     Dosage: 2.5 MG, DAILY (2.5 MG PER PEG DAILY)
  12. CLONIDINE. [Concomitant]
     Active Substance: CLONIDINE
     Dosage: 0.1 MG, 4X/DAY
     Route: 051
  13. LEVOTHYROXINE [Concomitant]
     Active Substance: LEVOTHYROXINE
     Dosage: UNK, DAILY (50 MCG (0.05 MG) ORAL TABLET,50 MCG = 1 TABLETS, PEG TUBE)
     Route: 048
  14. ASPIRIN. [Concomitant]
     Active Substance: ASPIRIN
     Dosage: UNK
  15. CLINDAMYCIN [Concomitant]
     Active Substance: CLINDAMYCIN\CLINDAMYCIN PHOSPHATE
     Dosage: 150 MG, UNK
     Route: 048
  16. KEPPRA [Concomitant]
     Active Substance: LEVETIRACETAM
     Dosage: 500 MG, 2X/DAY
  17. ASPIRIN. [Concomitant]
     Active Substance: ASPIRIN
     Dosage: 81 MG, DAILY
  18. LATANOPROST. [Concomitant]
     Active Substance: LATANOPROST
     Dosage: 1 DROP EACH EYE, 1X/DAY
  19. LATANOPROST. [Concomitant]
     Active Substance: LATANOPROST
     Dosage: UNK (0.005% OPHTHALMIC SOLUTION, L DROPS, OU, HS)
  20. LORATADINE. [Concomitant]
     Active Substance: LORATADINE
     Dosage: 10 MG, DAILY
  21. METOPROLOL [Concomitant]
     Active Substance: METOPROLOL
     Dosage: UNK, DAILY (12.5 PER PEG DAILY)
  22. TYLENOL [Concomitant]
     Active Substance: ACETAMINOPHEN
     Dosage: 1 DF, AS NEEDED (650 MG = 1 SUPP, RECTAL, Q6H, PRN)
  23. LOVENOX [Concomitant]
     Active Substance: ENOXAPARIN SODIUM
     Dosage: 0.4 ML, DAILY
     Route: 058
  24. METOPROLOL [Concomitant]
     Active Substance: METOPROLOL
     Dosage: 25 MG, UNK (DAY)
  25. LACTOBACILLUS [Concomitant]
     Active Substance: LACTOBACILLUS ACIDOPHILUS
     Dosage: 1 DF, 3X/DAY (1 TABLET PER PEG T.I.D)

REACTIONS (9)
  - Pneumonia staphylococcal [Unknown]
  - Metabolic encephalopathy [Unknown]
  - West Nile viral infection [Fatal]
  - Delirium [Unknown]
  - Sepsis [Unknown]
  - Malnutrition [Unknown]
  - Hypokalaemia [Unknown]
  - Encephalopathy [Fatal]
  - Urinary tract infection [Unknown]

NARRATIVE: CASE EVENT DATE: 20140814
